FAERS Safety Report 5194483-X (Version None)
Quarter: 2006Q4

REPORT INFORMATION
  Report Type: 
  Country: None (occurrence: None)
  Receive Date: 20061226
  Receipt Date: 20061211
  Transmission Date: 20070319
  Serious: Yes (Hospitalization, Other)
  Sender: FDA-Public Use
  Company Number: HQWYE976612JUL04

PATIENT
  Age: 52 Year
  Sex: Female

DRUGS (2)
  1. PREMPRO [Suspect]
     Indication: HORMONE REPLACEMENT THERAPY
     Dosage: ORAL
     Route: 048
     Dates: start: 20010829, end: 20030422
  2. PREMARIN [Suspect]
     Indication: HORMONE REPLACEMENT THERAPY
     Dosage: ORAL
     Route: 048
     Dates: start: 20010829, end: 20010906

REACTIONS (15)
  - DEEP VEIN THROMBOSIS [None]
  - DYSPNOEA [None]
  - EFFUSION [None]
  - HAEMATOMA [None]
  - INTERNATIONAL NORMALISED RATIO DECREASED [None]
  - JUGULAR VEIN THROMBOSIS [None]
  - LOCAL SWELLING [None]
  - LUNG CONSOLIDATION [None]
  - LYMPHADENOPATHY [None]
  - MEDIASTINUM NEOPLASM [None]
  - NUCLEAR MAGNETIC RESONANCE IMAGING ABNORMAL [None]
  - OEDEMA PERIPHERAL [None]
  - SKIN DISCOLOURATION [None]
  - SUBCLAVIAN VEIN THROMBOSIS [None]
  - VENOUS THROMBOSIS [None]
